FAERS Safety Report 7820618-3 (Version None)
Quarter: 2011Q4

REPORT INFORMATION
  Report Type: 
  Country: None (occurrence: None)
  Receive Date: 20111018
  Receipt Date: 20111006
  Transmission Date: 20120403
  Serious: Yes (Congenital Anomaly)
  Sender: FDA-Public Use
  Company Number: CA-JNJFOC-20111006741

PATIENT
  Sex: Male
  Weight: 3.4 kg

DRUGS (1)
  1. REMICADE [Suspect]
     Indication: MATERNAL EXPOSURE DURING PREGNANCY
     Dosage: DOSE REPORTED AS EVERY 6-8
     Route: 064

REACTIONS (3)
  - CAESAREAN SECTION [None]
  - CONGENITAL ANOMALY [None]
  - MATERNAL DRUGS AFFECTING FOETUS [None]
